FAERS Safety Report 15866298 (Version 22)
Quarter: 2023Q4

REPORT INFORMATION
  Report Type: Spontaneous
  Country: US (occurrence: US)
  Receive Date: 20190125
  Receipt Date: 20231130
  Transmission Date: 20240110
  Serious: No
  Sender: FDA-Public Use
  Company Number: US-PFIZER INC-2019034665

PATIENT
  Age: 84 Year
  Sex: Female

DRUGS (12)
  1. EUCRISA [Suspect]
     Active Substance: CRISABOROLE
     Indication: Dermatitis atopic
     Dosage: 1 DF, 2X/DAY
     Route: 061
     Dates: start: 201803
  2. EUCRISA [Suspect]
     Active Substance: CRISABOROLE
     Indication: Pruritus
     Dosage: 1 DF, 2X/DAY
     Route: 061
     Dates: start: 201810
  3. EUCRISA [Suspect]
     Active Substance: CRISABOROLE
     Indication: Rash
     Dosage: 1 DF, 2X/DAY
  4. EUCRISA [Suspect]
     Active Substance: CRISABOROLE
     Indication: Rash
     Dosage: 1 DF, 2X/DAY AS NEEDED
     Route: 061
  5. EUCRISA [Suspect]
     Active Substance: CRISABOROLE
     Indication: Eczema
     Dosage: 1 DF, 2X/DAY
     Route: 061
     Dates: start: 20210518
  6. EUCRISA [Suspect]
     Active Substance: CRISABOROLE
     Indication: Eczema
     Dosage: UNK
     Route: 061
  7. EUCRISA [Suspect]
     Active Substance: CRISABOROLE
     Dosage: 1 DF, 2X/DAY
     Route: 061
  8. EUCRISA [Suspect]
     Active Substance: CRISABOROLE
     Dosage: 1 DF, 2X/DAY
  9. EUCRISA [Suspect]
     Active Substance: CRISABOROLE
     Dosage: 1 DF, 2X/DAY AS NEEDED
  10. EUCRISA [Suspect]
     Active Substance: CRISABOROLE
     Dosage: 100 G (EUCRISA 100G TUBE)
  11. EUCRISA [Suspect]
     Active Substance: CRISABOROLE
  12. CLOBETASOL [Concomitant]
     Active Substance: CLOBETASOL
     Dosage: UNK

REACTIONS (13)
  - Drug ineffective [Unknown]
  - Rash macular [Not Recovered/Not Resolved]
  - Sneezing [Unknown]
  - Hypersensitivity [Unknown]
  - Thyroid disorder [Unknown]
  - Eczema [Unknown]
  - Confusional state [Unknown]
  - Memory impairment [Unknown]
  - Speech disorder [Unknown]
  - Insomnia [Unknown]
  - Cardiac disorder [Unknown]
  - Nervousness [Unknown]
  - Malaise [Unknown]

NARRATIVE: CASE EVENT DATE: 20180301
